FAERS Safety Report 14554997 (Version 2)
Quarter: 2018Q1

REPORT INFORMATION
  Report Type: Report from Study
  Country: JP (occurrence: JP)
  Receive Date: 20180220
  Receipt Date: 20180221
  Transmission Date: 20180509
  Serious: Yes (Other)
  Sender: FDA-Public Use
  Company Number: JP-TEVA-2018-JP-858121

PATIENT
  Age: 48 Year
  Sex: Female

DRUGS (4)
  1. HALOPERIDOL. [Suspect]
     Active Substance: HALOPERIDOL
     Indication: ANXIETY
     Dosage: 2.4 MILLIGRAM DAILY;
     Route: 065
  2. CHLORPROMAZINE. [Suspect]
     Active Substance: CHLORPROMAZINE
     Indication: CONVERSION DISORDER
  3. HALOPERIDOL. [Suspect]
     Active Substance: HALOPERIDOL
     Indication: CONVERSION DISORDER
  4. CHLORPROMAZINE. [Suspect]
     Active Substance: CHLORPROMAZINE
     Indication: ANXIETY
     Route: 065

REACTIONS (3)
  - Encephalopathy [Unknown]
  - Parkinsonism [Unknown]
  - Extrapyramidal disorder [Unknown]
